FAERS Safety Report 7107857-4 (Version None)
Quarter: 2010Q4

REPORT INFORMATION
  Report Type: 
  Country: None (occurrence: None)
  Receive Date: 20101117
  Receipt Date: 20101109
  Transmission Date: 20110411
  Serious: Yes (Hospitalization, Other)
  Sender: FDA-Public Use
  Company Number: US-BAYER-201039380NA

PATIENT
  Age: 45 Year
  Sex: Female
  Weight: 100 kg

DRUGS (19)
  1. YAZ [Suspect]
     Indication: PRODUCT USED FOR UNKNOWN INDICATION
     Dates: start: 20070801, end: 20090101
  2. YASMIN [Suspect]
     Indication: PREMENSTRUAL SYNDROME
     Dates: start: 20070801, end: 20090101
  3. OCELLA [Suspect]
     Indication: PRODUCT USED FOR UNKNOWN INDICATION
     Route: 048
     Dates: start: 20080701, end: 20090101
  4. NAPROXEN [Concomitant]
  5. ZITHROMAX [Concomitant]
     Dates: start: 20080101
  6. EXCEDRIN (MIGRAINE) [Concomitant]
     Indication: HEADACHE
     Dates: start: 20081201
  7. TYLENOL [Concomitant]
     Indication: HEADACHE
     Dates: start: 20081201
  8. VITAMINS [Concomitant]
     Indication: SUPPLEMENTATION THERAPY
     Dosage: DAILY
     Dates: start: 20081201
  9. TYLENOL SINUS ALLERGY [Concomitant]
     Indication: ALLERGIC SINUSITIS
     Dosage: 4 TIMES A WEEK
     Dates: start: 20081201
  10. FISH OIL [Concomitant]
     Indication: SUPPLEMENTATION THERAPY
     Dosage: DAILY
     Dates: start: 20081201
  11. SUDAFED 12 HOUR [Concomitant]
     Indication: ALLERGIC SINUSITIS
     Dates: start: 20081201
  12. JANTOVEN HYDROCODONE [Concomitant]
  13. STEROID SHOT NOS [Concomitant]
  14. MUCINEX [Concomitant]
  15. ROBITUSSIN DM [Concomitant]
  16. LORTAB [Concomitant]
  17. FLEXERIL [Concomitant]
  18. ULTRAM [Concomitant]
  19. NAPROSYN [Concomitant]

REACTIONS (5)
  - ATELECTASIS [None]
  - BRONCHITIS [None]
  - OEDEMA PERIPHERAL [None]
  - PAIN IN EXTREMITY [None]
  - PULMONARY EMBOLISM [None]
